FAERS Safety Report 9251366 (Version 1)
Quarter: 2013Q1

REPORT INFORMATION
  Report Type: Spontaneous
  Country: US (occurrence: None)
  Receive Date: 20130305
  Receipt Date: 20130305
  Transmission Date: 20140127
  Serious: Yes (Hospitalization)
  Sender: FDA-Public Use
  Company Number: 163-21880-12082250

PATIENT
  Age: 77 Year
  Sex: Female
  Weight: 49.9 kg

DRUGS (6)
  1. REVLIMID [Suspect]
     Indication: MYELODYSPLASTIC SYNDROME
     Dosage: 5 MG, 21 IN 28 D, PO
     Route: 048
     Dates: start: 20110304
  2. ARICEPT (DONEPEZIL HYDROCHLORIDE) [Concomitant]
  3. PREMARIN (ESTROGENS CONJUGATED) [Concomitant]
  4. PROVERA (MEDROXYPROGESTERONE ACETATE) [Concomitant]
  5. TYLENOL (PARACETAMOL) [Concomitant]
  6. WARFARIN (WARFARIN) [Concomitant]

REACTIONS (2)
  - Hip fracture [None]
  - Fall [None]
